FAERS Safety Report 8943474 (Version 1)
Quarter: 2012Q4

REPORT INFORMATION
  Report Type: 
  Country: US (occurrence: US)
  Receive Date: 20121204
  Receipt Date: 20121204
  Transmission Date: 20130627
  Serious: No
  Sender: FDA-Public Use
  Company Number: US-PFIZER INC-2012302037

PATIENT
  Age: 76 Year
  Sex: Female
  Weight: 113 kg

DRUGS (7)
  1. SUTENT [Suspect]
     Indication: RENAL CELL CANCER
     Dosage: UNK
     Dates: start: 201203, end: 2012
  2. ACETYLSALICYLIC ACID [Concomitant]
     Indication: ANTICOAGULANT THERAPY
     Dosage: UNK, daily
  3. METFORMIN [Concomitant]
     Indication: DIABETES
     Dosage: UNK, 3x/day
  4. INSULIN [Concomitant]
     Indication: DIABETES
     Dosage: UNK
  5. INSULIN DETEMIR [Concomitant]
     Indication: DIABETES
     Dosage: UNK
  6. LISINOPRIL [Concomitant]
     Indication: BLOOD PRESSURE ABNORMAL
     Dosage: UNK
  7. ZOCOR [Concomitant]
     Indication: BLOOD CHOLESTEROL ABNORMAL
     Dosage: UNK

REACTIONS (3)
  - Dysgeusia [Unknown]
  - Dysgeusia [Unknown]
  - Skin ulcer [Recovering/Resolving]
